FAERS Safety Report 5596999-0 (Version None)
Quarter: 2007Q4

REPORT INFORMATION
  Report Type: 
  Country: None (occurrence: None)
  Receive Date: 20071220
  Receipt Date: 20070313
  Transmission Date: 20080405
  Serious: Yes (Hospitalization)
  Sender: FDA-Public Use
  Company Number: 260913

PATIENT
  Age: 35 Year
  Sex: Male
  Weight: 69.8 kg

DRUGS (2)
  1. NOVOLOG MIX 70/30 FLEXPEN(INSULIN ASPART) SUSPENSION FOR INJECGTION, 1 [Suspect]
     Indication: INSULIN-REQUIRING TYPE II DIABETES MELLITUS
     Dosage: 25 IU, BID, SUBCUTANEOUS
     Route: 058
     Dates: start: 20070101, end: 20070101
  2. NOVOLIN N INNOLET (INSULIN HUMAN) SUSPENSION FOR INJECTION [Concomitant]

REACTIONS (1)
  - OEDEMA PERIPHERAL [None]
